FAERS Safety Report 25525971 (Version 2)
Quarter: 2025Q3

REPORT INFORMATION
  Report Type: Spontaneous
  Country: GB (occurrence: GB)
  Receive Date: 20250707
  Receipt Date: 20250909
  Transmission Date: 20251021
  Serious: Yes (Death)
  Sender: NOVARTIS
  Company Number: GB-002147023-NVSC2025GB105470

PATIENT

DRUGS (7)
  1. BASILIXIMAB [Suspect]
     Active Substance: BASILIXIMAB
     Indication: Graft versus host disease
     Route: 065
  2. TACROLIMUS [Concomitant]
     Active Substance: TACROLIMUS
     Indication: Graft versus host disease
     Route: 065
  3. SIROLIMUS [Concomitant]
     Active Substance: SIROLIMUS
     Indication: Graft versus host disease
     Route: 065
  4. METHYLPREDNISOLONE [Concomitant]
     Active Substance: METHYLPREDNISOLONE
     Indication: Graft versus host disease
     Route: 042
  5. INFLIXIMAB [Concomitant]
     Active Substance: INFLIXIMAB
     Indication: Graft versus host disease
     Route: 065
  6. DACLIZUMAB [Concomitant]
     Active Substance: DACLIZUMAB
     Indication: Graft versus host disease
     Route: 065
  7. MYCOPHENOLATE MOFETIL [Concomitant]
     Active Substance: MYCOPHENOLATE MOFETIL
     Indication: Graft versus host disease
     Dosage: 10 MG/KG, BID
     Route: 065

REACTIONS (3)
  - Graft versus host disease [Fatal]
  - Disease progression [Fatal]
  - Off label use [Unknown]
